FAERS Safety Report 12708594 (Version 2)
Quarter: 2016Q3

REPORT INFORMATION
  Report Type: Spontaneous
  Country: US (occurrence: US)
  Receive Date: 20160901
  Receipt Date: 20160916
  Transmission Date: 20161109
  Serious: Yes (Other)
  Sender: FDA-Public Use
  Company Number: US-PFIZER INC-2016411468

PATIENT
  Sex: Male

DRUGS (2)
  1. FRAGMIN [Suspect]
     Active Substance: DALTEPARIN SODIUM
     Dosage: UNK
  2. ALECTINIB [Concomitant]
     Active Substance: ALECTINIB
     Indication: LUNG NEOPLASM MALIGNANT
     Dosage: UNK

REACTIONS (1)
  - Thrombosis [Unknown]
